FAERS Safety Report 19468686 (Version 1)
Quarter: 2021Q2

REPORT INFORMATION
  Report Type: Spontaneous
  Country: NO (occurrence: NO)
  Receive Date: 20210628
  Receipt Date: 20210628
  Transmission Date: 20210717
  Serious: Yes (Hospitalization)
  Sender: FDA-Public Use
  Company Number: NO-MYLANLABS-2021M1038519

PATIENT
  Age: 6 Decade
  Sex: Male

DRUGS (13)
  1. QUETIAPINE. [Suspect]
     Active Substance: QUETIAPINE
     Indication: ANXIETY
     Dosage: 50 MILLIGRAM
     Route: 065
  2. QUETIAPINE. [Suspect]
     Active Substance: QUETIAPINE
     Indication: DRUG THERAPY
  3. LEVODOPA/CARBIDOPA [Concomitant]
     Active Substance: CARBIDOPA\LEVODOPA
     Indication: PARKINSON^S DISEASE
     Dosage: SLOW RELEASE FORMULATION; LEDD LEVODOPA: 75MG
     Route: 048
  4. PRAMIPEXOLE. [Suspect]
     Active Substance: PRAMIPEXOLE
     Indication: PARKINSON^S DISEASE
     Dosage: 1.05 MILLIGRAM, TID, THREE TIMES; LEDD: 315MG
     Route: 065
  5. LEVODOPA/BENSERAZIDE [Concomitant]
     Active Substance: BENSERAZIDE\LEVODOPA
     Indication: PARKINSON^S DISEASE
     Dosage: SOLUBLE; LEDD : 800?900 MG
     Route: 045
  6. LEVODOPA/CARBIDOPA/ENTACAPONE [Suspect]
     Active Substance: CARBIDOPA\ENTACAPONE\LEVODOPA
     Dosage: REDUCED TO LEVODOPA/CARBIDOPA/ENTACAPONE 125/31.5/200 MG SEVEN TIMES DAILY
     Route: 048
  7. LEVODOPA/CARBIDOPA/ENTACAPONE [Suspect]
     Active Substance: CARBIDOPA\ENTACAPONE\LEVODOPA
     Dosage: RESTARTED WITH DOSE ESCALATION OVER THE NEXT FEW DAYS.
     Route: 048
  8. DUODOPA [Concomitant]
     Active Substance: CARBIDOPA\LEVODOPA
     Indication: PARKINSON^S DISEASE
     Dosage: BY PUMP
  9. RASAGILINE MESILATE [Suspect]
     Active Substance: RASAGILINE MESYLATE
     Indication: PARKINSON^S DISEASE
     Dosage: 1 MILLIGRAM, LEDD: 100MG
     Route: 065
  10. LEVODOPA/CARBIDOPA/ENTACAPONE [Suspect]
     Active Substance: CARBIDOPA\ENTACAPONE\LEVODOPA
     Indication: PARKINSON^S DISEASE
     Dosage: SEVEN TIMES DAILY; LEVODOPA?EQUIVALENT DOSES (LEDD): ENTACAPONE 462MG, LEVODOPA 1400MG
     Route: 048
  11. ROTIGOTINE [Concomitant]
     Active Substance: ROTIGOTINE
     Indication: PSYCHOTIC DISORDER
     Dosage: SUSTAINED?RELEASE PATCHES
     Route: 062
  12. ENOXAPARIN [Concomitant]
     Active Substance: ENOXAPARIN
     Indication: DRUG THERAPY
     Dosage: 40 MILLIGRAM, ENOXAPARIN 40 MG X 1
     Route: 058
  13. CLOZAPINE. [Suspect]
     Active Substance: CLOZAPINE
     Indication: PSYCHOTIC DISORDER
     Dosage: 25 MILLIGRAM
     Route: 065

REACTIONS (10)
  - Psychomotor hyperactivity [Not Recovered/Not Resolved]
  - Psychotic disorder [Not Recovered/Not Resolved]
  - Emotional disorder [Not Recovered/Not Resolved]
  - Impulsive behaviour [Not Recovered/Not Resolved]
  - Delusion [Not Recovered/Not Resolved]
  - Cognitive disorder [Not Recovered/Not Resolved]
  - Parkinsonism hyperpyrexia syndrome [Not Recovered/Not Resolved]
  - Withdrawal syndrome [Not Recovered/Not Resolved]
  - Dyskinesia [Not Recovered/Not Resolved]
  - Hypomania [Not Recovered/Not Resolved]
